APPROVED DRUG PRODUCT: BENTYL
Active Ingredient: DICYCLOMINE HYDROCHLORIDE
Strength: 10MG/5ML **Federal Register determination that product was not discontinued or withdrawn for safety or effectiveness reasons**
Dosage Form/Route: SYRUP;ORAL
Application: N007961 | Product #002
Applicant: APTALIS PHARMA US INC
Approved: Oct 15, 1984 | RLD: Yes | RS: No | Type: DISCN